FAERS Safety Report 7599974-X (Version None)
Quarter: 2011Q3

REPORT INFORMATION
  Report Type: 
  Country: None (occurrence: None)
  Receive Date: 20110711
  Receipt Date: 20110707
  Transmission Date: 20111222
  Serious: No
  Sender: FDA-Public Use
  Company Number: US-PFIZER INC-2011153274

PATIENT
  Age: 8 Year
  Sex: Male

DRUGS (1)
  1. VIAGRA [Suspect]
     Dosage: 250 MG, UNK
     Route: 048
     Dates: start: 20110706

REACTIONS (2)
  - ERECTION INCREASED [None]
  - ACCIDENTAL DRUG INTAKE BY CHILD [None]
